FAERS Safety Report 15581608 (Version 2)
Quarter: 2019Q3

REPORT INFORMATION
  Report Type: Spontaneous
  Country: US (occurrence: US)
  Receive Date: 20181102
  Receipt Date: 20190805
  Transmission Date: 20191004
  Serious: No
  Sender: FDA-Public Use
  Company Number: US-RADIUS HEALTH INC.-2018US002577

PATIENT
  Sex: Female

DRUGS (1)
  1. TYMLOS [Suspect]
     Active Substance: ABALOPARATIDE
     Indication: OSTEOPOROSIS POSTMENOPAUSAL
     Dosage: 80 MCG, DAILY
     Dates: start: 20180517, end: 20190517

REACTIONS (5)
  - Paraesthesia [Not Recovered/Not Resolved]
  - Tachycardia [Not Recovered/Not Resolved]
  - Back pain [Unknown]
  - Palpitations [Unknown]
  - Myalgia [Not Recovered/Not Resolved]
